FAERS Safety Report 25484878 (Version 1)
Quarter: 2025Q2

REPORT INFORMATION
  Report Type: Spontaneous
  Country: CA (occurrence: CA)
  Receive Date: 20250626
  Receipt Date: 20250626
  Transmission Date: 20250716
  Serious: Yes (Other)
  Sender: MYLAN
  Company Number: CA-MYLANLABS-2025M1053681

PATIENT
  Age: 19 Year
  Sex: Male
  Weight: 63.5 kg

DRUGS (4)
  1. ISOTRETINOIN [Suspect]
     Active Substance: ISOTRETINOIN
     Indication: Acne
     Dosage: 80.0 MILLIGRAM, QD, (1 EVERY 1 DAY)
  2. ISOTRETINOIN [Suspect]
     Active Substance: ISOTRETINOIN
     Dosage: 80.0 MILLIGRAM, QD, (1 EVERY 1 DAY)
     Route: 048
  3. ISOTRETINOIN [Suspect]
     Active Substance: ISOTRETINOIN
     Dosage: 80.0 MILLIGRAM, QD, (1 EVERY 1 DAY)
     Route: 048
  4. ISOTRETINOIN [Suspect]
     Active Substance: ISOTRETINOIN
     Dosage: 80.0 MILLIGRAM, QD, (1 EVERY 1 DAY)

REACTIONS (3)
  - Lip pain [Unknown]
  - Lip swelling [Unknown]
  - Pain in extremity [Unknown]
